FAERS Safety Report 13738070 (Version 2)
Quarter: 2017Q3

REPORT INFORMATION
  Report Type: Spontaneous
  Country: FR (occurrence: FR)
  Receive Date: 20170710
  Receipt Date: 20170720
  Transmission Date: 20171127
  Serious: Yes (Other)
  Sender: FDA-Public Use
  Company Number: FR-PFIZER INC-2017293111

PATIENT
  Sex: Male

DRUGS (3)
  1. TRAMADOL SANDOZ [Suspect]
     Active Substance: TRAMADOL
     Dosage: 2 DF, DAILY, MORNING AND EVENING
     Route: 048
     Dates: start: 20170308, end: 201706
  2. LYRICA [Suspect]
     Active Substance: PREGABALIN
     Dosage: 25 MG, 2X/DAY MORNING AND EVENING
  3. LYRICA [Suspect]
     Active Substance: PREGABALIN
     Dosage: 25 MG, 1X/DAY (IN THE EVENING)

REACTIONS (10)
  - Restlessness [Recovering/Resolving]
  - Peripheral swelling [Recovering/Resolving]
  - Fatigue [Recovering/Resolving]
  - Suicidal ideation [Recovering/Resolving]
  - Colitis [Recovering/Resolving]
  - Vision blurred [Recovering/Resolving]
  - Feeling abnormal [Recovering/Resolving]
  - Abdominal distension [Recovering/Resolving]
  - Insomnia [Recovering/Resolving]
  - Withdrawal syndrome [Recovering/Resolving]

NARRATIVE: CASE EVENT DATE: 201706
